FAERS Safety Report 9103705 (Version 5)
Quarter: 2014Q2

REPORT INFORMATION
  Report Type: Report from Study
  Country: JP (occurrence: JP)
  Receive Date: 20130219
  Receipt Date: 20140421
  Transmission Date: 20141212
  Serious: Yes (Hospitalization, Other)
  Sender: FDA-Public Use
  Company Number: JP-PFIZER INC-2013059532

PATIENT
  Age: 76 Year
  Sex: Male
  Weight: 60.4 kg

DRUGS (5)
  1. XALKORI [Suspect]
     Indication: NON-SMALL CELL LUNG CANCER
     Dosage: 250 MG, 2X/DAY
     Route: 048
     Dates: start: 20121023, end: 20121104
  2. XALKORI [Suspect]
     Dosage: 250 MG, 2X/DAY
     Route: 048
     Dates: start: 20121126, end: 20121130
  3. TAKEPRON OD [Concomitant]
     Dosage: 15 MG, 1X/DAY
     Route: 048
  4. CALBLOCK [Concomitant]
     Dosage: 16 MG, 1X/DAY
     Route: 048
  5. LAXOBERON [Concomitant]
     Dosage: UNK
     Route: 048

REACTIONS (3)
  - Pancreatitis acute [Recovering/Resolving]
  - Liver disorder [Recovering/Resolving]
  - Gastrointestinal disorder [Recovered/Resolved]
